FAERS Safety Report 7395866-X (Version None)
Quarter: 2011Q2

REPORT INFORMATION
  Report Type: 
  Country: None (occurrence: None)
  Receive Date: 20110405
  Receipt Date: 20110331
  Transmission Date: 20111010
  Serious: Yes (Hospitalization, Other)
  Sender: FDA-Public Use
  Company Number: US-BRISTOL-MYERS SQUIBB COMPANY-15648744

PATIENT
  Age: 64 Year
  Sex: Male
  Weight: 59 kg

DRUGS (3)
  1. TAXOL [Suspect]
     Indication: NON-SMALL CELL LUNG CANCER
     Dates: end: 20110322
  2. ERBITUX [Suspect]
     Indication: NON-SMALL CELL LUNG CANCER
     Dates: end: 20110330
  3. CARBOPLATIN [Suspect]
     Indication: NON-SMALL CELL LUNG CANCER
     Dates: end: 20110330

REACTIONS (3)
  - ANAEMIA [None]
  - DEHYDRATION [None]
  - CACHEXIA [None]
